FAERS Safety Report 8867626 (Version 1)
Quarter: 2012Q4

REPORT INFORMATION
  Report Type: 
  Country: US (occurrence: US)
  Receive Date: 20121025
  Receipt Date: 20121025
  Transmission Date: 20130627
  Serious: No
  Sender: FDA-Public Use
  Company Number: US-AMGEN-USASP2012017527

PATIENT
  Age: 67 Year
  Sex: Male
  Weight: 63.49 kg

DRUGS (10)
  1. ENBREL [Suspect]
     Indication: PSORIATIC ARTHROPATHY
     Dosage: 50 mg, qwk
  2. METFORMIN [Concomitant]
     Dosage: 500 mg, UNK
  3. PANTOPRAZOLE [Concomitant]
     Dosage: 40 mg, UNK
  4. PRAVASTATIN [Concomitant]
     Dosage: 20 mg, UNK
  5. NIACINOL [Concomitant]
     Dosage: 500 mg, UNK
  6. VITAMIN D /00107901/ [Concomitant]
     Dosage: 1000 IU, UNK
  7. FISH OIL [Concomitant]
  8. L-LYSINE                           /00919901/ [Concomitant]
     Dosage: 10 mg, UNK
  9. ASPIRIN [Concomitant]
     Dosage: 81 mg, UNK
  10. LISINOPRIL [Concomitant]
     Dosage: 10 mg, UNK

REACTIONS (1)
  - Abdominal pain upper [Recovered/Resolved]
